FAERS Safety Report 10084213 (Version 1)
Quarter: 2014Q2

REPORT INFORMATION
  Report Type: Spontaneous
  Country: US (occurrence: None)
  Receive Date: 20140415
  Receipt Date: 20140415
  Transmission Date: 20141212
  Serious: Yes (Hospitalization)
  Sender: FDA-Public Use
  Company Number: 2014-US-004221

PATIENT
  Age: 21 Year
  Sex: Male

DRUGS (5)
  1. FAZACLO ODT (CLOZAPINE) TABLET, 100MG [Suspect]
     Route: 048
     Dates: start: 20140314, end: 20140327
  2. BENZTROPINE MESILATE [Concomitant]
  3. CLONAZEPAM [Concomitant]
  4. PRAVASTATIN [Concomitant]
  5. VALPROATE [Concomitant]

REACTIONS (4)
  - Acute respiratory failure [None]
  - Myocarditis [None]
  - Pancreatitis [None]
  - Pyrexia [None]
